FAERS Safety Report 15333566 (Version 1)
Quarter: 2018Q3

REPORT INFORMATION
  Report Type: Other
  Country: CA (occurrence: CA)
  Receive Date: 20180830
  Receipt Date: 20180830
  Transmission Date: 20181010
  Serious: Yes (Other)
  Sender: FDA-Public Use
  Company Number: CA-APOTEX-2018AP019401

PATIENT
  Sex: Female

DRUGS (9)
  1. LEFLUNOMIDE. [Suspect]
     Active Substance: LEFLUNOMIDE
     Indication: RHEUMATOID ARTHRITIS
     Dosage: UNK, UNKNOWN
     Route: 065
  2. METHOTREXATE. [Suspect]
     Active Substance: METHOTREXATE
     Indication: RHEUMATOID ARTHRITIS
     Dosage: 25 MG, UNKNOWN
     Route: 058
  3. XELJANZ [Concomitant]
     Active Substance: TOFACITINIB CITRATE
     Indication: RHEUMATOID ARTHRITIS
     Dosage: 5 MG, BID
     Route: 065
  4. SULFASALAZINE. [Suspect]
     Active Substance: SULFASALAZINE
     Indication: RHEUMATOID ARTHRITIS
     Dosage: UNK, UNKNOWN
     Route: 065
  5. PLAQUENIL                          /00072602/ [Concomitant]
     Active Substance: HYDROXYCHLOROQUINE DIPHOSPHATE
     Indication: RHEUMATOID ARTHRITIS
     Dosage: 2 DF, QD
     Route: 065
  6. INFLIXIMAB [Suspect]
     Active Substance: INFLIXIMAB
     Indication: RHEUMATOID ARTHRITIS
     Dosage: 5 MG/KG, 1 EVERY 6 WEEKS
     Route: 042
  7. ETANERCEPT [Suspect]
     Active Substance: ETANERCEPT
     Indication: RHEUMATOID ARTHRITIS
     Dosage: 50 MG, Q.WK.
     Route: 058
  8. HUMIRA [Suspect]
     Active Substance: ADALIMUMAB
     Indication: RHEUMATOID ARTHRITIS
     Dosage: 40 MG, 1 EVERY 2 WEEKS
     Route: 058
  9. HYDROXYCHLOROQUINE [Concomitant]
     Active Substance: HYDROXYCHLOROQUINE
     Indication: RHEUMATOID ARTHRITIS
     Dosage: 400 MG, QD
     Route: 065

REACTIONS (10)
  - Malaise [Unknown]
  - Influenza like illness [Unknown]
  - Infusion related reaction [Unknown]
  - Vomiting [Unknown]
  - Gastric haemorrhage [Unknown]
  - Headache [Unknown]
  - Drug hypersensitivity [Unknown]
  - Urinary tract infection [Unknown]
  - Hepatic enzyme increased [Unknown]
  - Nausea [Unknown]
